FAERS Safety Report 5517556-8 (Version None)
Quarter: 2007Q4

REPORT INFORMATION
  Report Type: 
  Country: None (occurrence: None)
  Receive Date: 20071114
  Receipt Date: 20071112
  Transmission Date: 20080405
  Serious: No
  Sender: FDA-Public Use
  Company Number: GB-WYE-G00554007

PATIENT
  Sex: Female
  Weight: 71 kg

DRUGS (3)
  1. EFFEXOR XR [Suspect]
     Dosage: UNKNOWN
     Dates: start: 20071001
  2. CALCICHEW [Concomitant]
     Route: 048
  3. IBANDRONATE SODIUM [Concomitant]
     Route: 048

REACTIONS (1)
  - ERYTHEMA NODOSUM [None]
